FAERS Safety Report 4695587-8 (Version None)
Quarter: 2005Q2

REPORT INFORMATION
  Report Type: 
  Country: None (occurrence: None)
  Receive Date: 20050524
  Receipt Date: 20050519
  Transmission Date: 20051028
  Serious: Yes (Life-Threatening)
  Sender: FDA-Public Use
  Company Number: 2005CG00954

PATIENT
  Age: 57 Year
  Sex: Male

DRUGS (1)
  1. XYLOCAINE [Suspect]
     Indication: LOCAL ANAESTHESIA
     Route: 058
     Dates: start: 20050404, end: 20050404

REACTIONS (4)
  - DYSKINESIA [None]
  - LOSS OF CONSCIOUSNESS [None]
  - MALAISE [None]
  - TINNITUS [None]
